FAERS Safety Report 5486193-6 (Version None)
Quarter: 2007Q4

REPORT INFORMATION
  Report Type: 
  Country: None (occurrence: None)
  Receive Date: 20071012
  Receipt Date: 20071005
  Transmission Date: 20080405
  Serious: Yes (Other)
  Sender: FDA-Public Use
  Company Number: 2007317038

PATIENT
  Age: 8 Year
  Sex: Male
  Weight: 31.8 kg

DRUGS (1)
  1. LISTERINE AGENT COOL BLUE BUBBLE BLAST (NO ACTIVE INGREDIENT) [Suspect]
     Indication: DENTAL DISORDER PROPHYLAXIS
     Dosage: RECOMMENDED DOSAGE TWICE DAILY (2 IN 1 D), ORAL TOPICAL
     Dates: start: 20070315, end: 20070422

REACTIONS (4)
  - DENTAL CARIES [None]
  - GINGIVAL BLISTER [None]
  - ORAL INFECTION [None]
  - TOOTH ABSCESS [None]
